FAERS Safety Report 12300230 (Version 2)
Quarter: 2016Q2

REPORT INFORMATION
  Report Type: Report from Study
  Country: US (occurrence: US)
  Receive Date: 20160425
  Receipt Date: 20160623
  Transmission Date: 20160815
  Serious: Yes (Death, Other)
  Sender: FDA-Public Use
  Company Number: US-BAYER-2016-074054

PATIENT
  Age: 77 Year
  Sex: Male

DRUGS (5)
  1. OPSUMIT [Concomitant]
     Active Substance: MACITENTAN
     Dosage: DAILY DOSE 10 MG
     Route: 048
  2. ALLOPURINOL. [Concomitant]
     Active Substance: ALLOPURINOL
     Dosage: 100 MG, QD
     Route: 048
  3. ADEMPAS [Suspect]
     Active Substance: RIOCIGUAT
     Indication: PULMONARY ARTERIAL HYPERTENSION
     Dosage: 2.5 MG, TID
     Route: 048
     Dates: end: 20160404
  4. OXYGEN. [Concomitant]
     Active Substance: OXYGEN
     Route: 045
  5. ADEMPAS [Suspect]
     Active Substance: RIOCIGUAT
     Indication: PULMONARY ARTERIAL HYPERTENSION
     Dosage: UNK
     Route: 048
     Dates: start: 20141201

REACTIONS (7)
  - Nasal inflammation [None]
  - Hypertension [None]
  - Death [Fatal]
  - Diabetes mellitus [None]
  - Chronic respiratory failure [None]
  - Oxygen saturation decreased [None]
  - Sleep apnoea syndrome [None]

NARRATIVE: CASE EVENT DATE: 20160404
